FAERS Safety Report 11164169 (Version 1)
Quarter: 2015Q2

REPORT INFORMATION
  Report Type: Spontaneous
  Country: CN (occurrence: None)
  Receive Date: 20150602
  Receipt Date: 20150602
  Transmission Date: 20150821
  Serious: Yes (Other)
  Sender: FDA-Public Use
  Company Number: CN-2015VAL000362

PATIENT
  Age: 70 Year
  Sex: Female

DRUGS (2)
  1. LANTHANUM CARBONATE. [Suspect]
     Active Substance: LANTHANUM CARBONATE
     Indication: BLOOD PHOSPHORUS INCREASED
     Route: 048
     Dates: start: 2014
  2. ROCALTROL [Suspect]
     Active Substance: CALCITRIOL
     Indication: RENAL OSTEODYSTROPHY
     Dosage: 0.25 UG, QD, ORAL
     Route: 048
     Dates: start: 2010, end: 201410

REACTIONS (12)
  - Pruritus [None]
  - Decreased appetite [None]
  - Arthralgia [None]
  - Haemoglobin decreased [None]
  - Back pain [None]
  - Off label use [None]
  - Treatment noncompliance [None]
  - Blood phosphorus increased [None]
  - Vomiting [None]
  - Pain in extremity [None]
  - Blood calcium increased [None]
  - Bone disorder [None]

NARRATIVE: CASE EVENT DATE: 2014
